FAERS Safety Report 5285552-4 (Version None)
Quarter: 2007Q1

REPORT INFORMATION
  Report Type: 
  Country: None (occurrence: None)
  Receive Date: 20061229
  Receipt Date: 20061030
  Transmission Date: 20070707
  Serious: Yes (Other)
  Sender: FDA-Public Use
  Company Number: 2006UW20785

PATIENT
  Age: 67 Year
  Sex: Female
  Weight: 42.637 kg

DRUGS (6)
  1. CRESTOR [Suspect]
     Indication: BLOOD CHOLESTEROL INCREASED
     Dosage: 5 MG  PO
     Route: 048
     Dates: start: 20061001
  2. LASIX [Concomitant]
  3. K-DUR 10 [Concomitant]
  4. EYE-CAPS [Concomitant]
  5. POTASSIUM ACETATE [Concomitant]
  6. PRILOSEC [Concomitant]

REACTIONS (2)
  - ALOPECIA [None]
  - MUSCLE SPASMS [None]
